FAERS Safety Report 17514169 (Version 1)
Quarter: 2020Q1

REPORT INFORMATION
  Report Type: Spontaneous
  Country: SI (occurrence: SI)
  Receive Date: 20200309
  Receipt Date: 20200309
  Transmission Date: 20200409
  Serious: Yes (Other)
  Sender: FDA-Public Use
  Company Number: SI-ROCHE-2562045

PATIENT
  Age: 62 Year
  Sex: Male

DRUGS (1)
  1. GAZYVARO [Suspect]
     Active Substance: OBINUTUZUMAB
     Indication: CHRONIC LYMPHOCYTIC LEUKAEMIA
     Dosage: 1000 MG CONCENTRATE FOR SOLUTION FOE INFUSION
     Route: 042
     Dates: start: 20200215, end: 20200215

REACTIONS (5)
  - Pancytopenia [Recovering/Resolving]
  - Hyperphosphataemia [Recovering/Resolving]
  - Acute kidney injury [Recovering/Resolving]
  - Hypocalcaemia [Recovering/Resolving]
  - Tumour lysis syndrome [Recovering/Resolving]

NARRATIVE: CASE EVENT DATE: 20200215
